FAERS Safety Report 7391968-2 (Version None)
Quarter: 2011Q2

REPORT INFORMATION
  Report Type: 
  Country: None (occurrence: None)
  Receive Date: 20110404
  Receipt Date: 20110321
  Transmission Date: 20111010
  Serious: Yes (Other)
  Sender: FDA-Public Use
  Company Number: US-WATSON-2011-03818

PATIENT
  Sex: Male

DRUGS (1)
  1. FENTANYL-75 [Suspect]
     Indication: PRODUCT USED FOR UNKNOWN INDICATION
     Route: 062

REACTIONS (2)
  - LOSS OF CONSCIOUSNESS [None]
  - EUPHORIC MOOD [None]
